FAERS Safety Report 25770121 (Version 1)
Quarter: 2025Q3

REPORT INFORMATION
  Report Type: Report from Study
  Country: JP (occurrence: JP)
  Receive Date: 20250907
  Receipt Date: 20250907
  Transmission Date: 20251020
  Serious: Yes (Hospitalization)
  Sender: ABBVIE
  Company Number: JP-ABBVIE-6411427

PATIENT
  Age: 70 Year
  Sex: Female

DRUGS (2)
  1. VYALEV [Suspect]
     Active Substance: FOSCARBIDOPA\FOSLEVODOPA
     Indication: Parkinson^s disease
     Route: 058
  2. VYALEV [Suspect]
     Active Substance: FOSCARBIDOPA\FOSLEVODOPA
     Route: 058

REACTIONS (3)
  - Altered state of consciousness [Recovered/Resolved]
  - Dementia with Lewy bodies [Unknown]
  - Parkinson^s disease [Unknown]

NARRATIVE: CASE EVENT DATE: 20250811
